FAERS Safety Report 10513852 (Version 2)
Quarter: 2014Q4

REPORT INFORMATION
  Report Type: Spontaneous
  Country: US (occurrence: US)
  Receive Date: 20141013
  Receipt Date: 20141109
  Transmission Date: 20150528
  Serious: Yes (Other)
  Sender: FDA-Public Use
  Company Number: US-PFIZER INC-2014275700

PATIENT
  Age: 55 Year
  Sex: Female
  Weight: 91 kg

DRUGS (11)
  1. ROBAXIN [Concomitant]
     Active Substance: METHOCARBAMOL
     Dosage: 750 MG, EVERY 4 HRS
     Route: 048
  2. GLIPIZIDE XL [Suspect]
     Active Substance: GLIPIZIDE
     Dosage: 5 MG, 1X/DAY; 90 DAYS BEFORE BREAKFAST
     Route: 048
     Dates: start: 20140121
  3. FENOFIBRATE. [Concomitant]
     Active Substance: FENOFIBRATE
     Indication: LIPIDS
     Dosage: 54 MG, 1X/DAY
     Route: 048
  4. FOLIC ACID. [Concomitant]
     Active Substance: FOLIC ACID
     Dosage: 1 MG, DAILY
     Route: 048
  5. VITAMIN D2 [Concomitant]
     Active Substance: ERGOCALCIFEROL
     Dosage: 1 DF (50000 UNITS), WEEKLY
     Route: 048
  6. NEXIUM [Concomitant]
     Active Substance: ESOMEPRAZOLE MAGNESIUM
     Dosage: 40 MG, DAILY
     Route: 048
  7. ZOFRAN [Concomitant]
     Active Substance: ONDANSETRON HYDROCHLORIDE
     Dosage: 4 MG, 3X/DAY
     Route: 048
  8. ULORIC [Concomitant]
     Active Substance: FEBUXOSTAT
     Indication: NEPHROLITHIASIS
     Dosage: 40 MG, 1X/DAY
     Route: 048
  9. FLECTOR [Concomitant]
     Active Substance: DICLOFENAC EPOLAMINE
     Dosage: 180 MG, 2X/DAY
     Route: 062
  10. GLIPIZIDE XL [Suspect]
     Active Substance: GLIPIZIDE
     Dosage: 5 MG, UNK
     Route: 048
     Dates: start: 201408
  11. BENTYL [Concomitant]
     Active Substance: DICYCLOMINE HYDROCHLORIDE
     Dosage: 10 MG, AS NEEDED
     Route: 048

REACTIONS (6)
  - Colitis [Unknown]
  - Therapeutic response delayed [Unknown]
  - Feeling abnormal [Unknown]
  - Blood glucose increased [Unknown]
  - Weight decreased [Unknown]
  - Product substitution issue [Unknown]
